APPROVED DRUG PRODUCT: TETRACYN
Active Ingredient: PROCAINE HYDROCHLORIDE; TETRACYCLINE HYDROCHLORIDE
Strength: 40MG/VIAL;250MG/VIAL
Dosage Form/Route: INJECTABLE;INJECTION
Application: A060285 | Product #003
Applicant: PFIZER LABORATORIES DIV PFIZER INC
Approved: Approved Prior to Jan 1, 1982 | RLD: No | RS: No | Type: DISCN